FAERS Safety Report 5279303-7 (Version None)
Quarter: 2007Q1

REPORT INFORMATION
  Report Type: 
  Country: None (occurrence: None)
  Receive Date: 20070328
  Receipt Date: 20060524
  Transmission Date: 20070707
  Serious: No
  Sender: FDA-Public Use
  Company Number: US-AMGEN-KDL180631

PATIENT
  Sex: Female

DRUGS (14)
  1. NEULASTA [Suspect]
     Indication: CHEMOTHERAPY
     Route: 058
     Dates: start: 20060517, end: 20060517
  2. UNSPECIFIED MEDICATION [Suspect]
  3. CYTOXAN [Concomitant]
     Dates: start: 20060516, end: 20060517
  4. EPIRUBICIN [Concomitant]
     Dates: start: 20060516, end: 20060517
  5. FLUOROURACIL [Concomitant]
     Dates: start: 20060516, end: 20060517
  6. ALOXI [Concomitant]
     Dates: start: 20060516, end: 20060517
  7. DECADRON [Concomitant]
     Dates: start: 20060516, end: 20060517
  8. EMEND [Concomitant]
     Route: 048
     Dates: start: 20060516, end: 20060517
  9. EMEND [Concomitant]
     Dates: start: 20060517, end: 20060518
  10. ATIVAN [Concomitant]
     Dates: start: 20060517
  11. ZOFRAN [Concomitant]
     Dates: start: 20060517
  12. HYDROXYUREA [Concomitant]
  13. FISH OIL [Concomitant]
  14. DECADRON [Concomitant]
     Dates: start: 20060517, end: 20060518

REACTIONS (4)
  - BONE PAIN [None]
  - FEELING ABNORMAL [None]
  - SUPRAVENTRICULAR TACHYCARDIA [None]
  - WHITE BLOOD CELL COUNT INCREASED [None]
